FAERS Safety Report 6610806-6 (Version None)
Quarter: 2010Q1

REPORT INFORMATION
  Report Type: 
  Country: None (occurrence: None)
  Receive Date: 20100302
  Receipt Date: 20100218
  Transmission Date: 20100710
  Serious: Yes (Hospitalization)
  Sender: FDA-Public Use
  Company Number: NL-PFIZER INC-2010018201

PATIENT
  Age: 67 Year
  Sex: Male
  Weight: 82 kg

DRUGS (2)
  1. SOMATROPIN [Suspect]
     Indication: HYPOPITUITARISM
     Dosage: 0.2 MG, 1X/DAY
     Route: 058
     Dates: start: 20040831, end: 20090616
  2. ANDROGEL [Suspect]
     Dosage: 50 MG, 1X/DAY
     Route: 062
     Dates: start: 20051006, end: 20090616

REACTIONS (1)
  - PROSTATE CANCER [None]
